FAERS Safety Report 24223315 (Version 1)
Quarter: 2024Q3

REPORT INFORMATION
  Report Type: Spontaneous
  Country: US (occurrence: US)
  Receive Date: 20240819
  Receipt Date: 20240819
  Transmission Date: 20241017
  Serious: No
  Sender: ANI
  Company Number: US-ANIPHARMA-2024-US-034419

PATIENT
  Sex: Female
  Weight: 59.9 kg

DRUGS (2)
  1. ANASTROZOLE [Suspect]
     Active Substance: ANASTROZOLE
     Indication: Product used for unknown indication
  2. TAGRISSO [Suspect]
     Active Substance: OSIMERTINIB
     Dosage: 40 MILLIGRAMS DAILY
     Route: 048
     Dates: start: 202108

REACTIONS (8)
  - Diarrhoea [Unknown]
  - Asthenia [Unknown]
  - Fall [Unknown]
  - Head injury [Unknown]
  - Rash [Unknown]
  - Onychoclasis [Unknown]
  - Hair colour changes [Unknown]
  - Visual impairment [Unknown]
